FAERS Safety Report 12269531 (Version 1)
Quarter: 2016Q2

REPORT INFORMATION
  Report Type: Report from Study
  Country: CA (occurrence: CA)
  Receive Date: 20160414
  Receipt Date: 20160414
  Transmission Date: 20160815
  Serious: Yes (Other)
  Sender: FDA-Public Use
  Company Number: CA-JNJFOC-20160405177

PATIENT
  Age: 53 Year
  Sex: Female
  Weight: 103.2 kg

DRUGS (1)
  1. STELARA [Suspect]
     Active Substance: USTEKINUMAB
     Indication: PSORIASIS
     Route: 058
     Dates: start: 20111225

REACTIONS (3)
  - Product use issue [Unknown]
  - Intracranial mass [Unknown]
  - Off label use [Unknown]

NARRATIVE: CASE EVENT DATE: 20111225
